FAERS Safety Report 11633270 (Version 1)
Quarter: 2015Q4

REPORT INFORMATION
  Report Type: Spontaneous
  Country: JP (occurrence: JP)
  Receive Date: 20151015
  Receipt Date: 20151015
  Transmission Date: 20160304
  Serious: Yes (Life-Threatening)
  Sender: FDA-Public Use
  Company Number: JP-JNJFOC-20151001565

PATIENT
  Age: 76 Year
  Sex: Male

DRUGS (2)
  1. RIUP [Suspect]
     Active Substance: MINOXIDIL
     Route: 061
  2. RIUP [Suspect]
     Active Substance: MINOXIDIL
     Indication: PRODUCT USED FOR UNKNOWN INDICATION
     Route: 061
     Dates: start: 199906

REACTIONS (2)
  - Alanine aminotransferase increased [None]
  - Arteritis [Recovered/Resolved]

NARRATIVE: CASE EVENT DATE: 201502
